FAERS Safety Report 5205090-4 (Version None)
Quarter: 2007Q1

REPORT INFORMATION
  Report Type: 
  Country: None (occurrence: None)
  Receive Date: 20070110
  Receipt Date: 20061026
  Transmission Date: 20070707
  Serious: No
  Sender: FDA-Public Use
  Company Number: US-BRISTOL-MYERS SQUIBB COMPANY-13557020

PATIENT
  Age: 8 Decade
  Sex: Female

DRUGS (3)
  1. ABILIFY [Suspect]
     Indication: DEMENTIA
     Route: 048
  2. ABILIFY [Suspect]
     Indication: PSYCHOTIC DISORDER
     Route: 048
  3. EFFEXOR [Concomitant]

REACTIONS (2)
  - MANIA [None]
  - TARDIVE DYSKINESIA [None]
